FAERS Safety Report 6312433-7 (Version None)
Quarter: 2009Q3

REPORT INFORMATION
  Report Type: 
  Country: None (occurrence: None)
  Receive Date: 20090813
  Receipt Date: 20090730
  Transmission Date: 20100115
  Serious: Yes (Other)
  Sender: FDA-Public Use
  Company Number: 8050010

PATIENT
  Age: 70 Year
  Sex: Male

DRUGS (10)
  1. KEPPRA [Suspect]
     Indication: EPILEPSY
     Dosage: 500 MG 2/D PO
     Route: 048
  2. KEPPRA [Suspect]
     Indication: EPILEPSY
     Dosage: 1000 MG 2/D PO
     Route: 048
  3. KEPPRA [Suspect]
     Indication: EPILEPSY
     Dosage: 500 MG 2/D PO
     Route: 048
  4. DOPAMINE AGONIST [Concomitant]
  5. PROLOPA [Concomitant]
  6. MIRAPEX [Concomitant]
  7. COMTAN [Concomitant]
  8. SIPRALEXA /01588501/ [Concomitant]
  9. ASAFLOW [Concomitant]
  10. LAMICTAL [Concomitant]

REACTIONS (1)
  - HYPERSEXUALITY [None]
